FAERS Safety Report 7106108-4 (Version None)
Quarter: 2010Q4

REPORT INFORMATION
  Report Type: 
  Country: None (occurrence: None)
  Receive Date: 20101116
  Receipt Date: 20101110
  Transmission Date: 20110411
  Serious: Yes (Death)
  Sender: FDA-Public Use
  Company Number: CN-BAYER-201044481GPV

PATIENT
  Age: 67 Year

DRUGS (1)
  1. SORAFENIB [Suspect]
     Indication: RENAL CELL CARCINOMA
     Dates: start: 20071206

REACTIONS (1)
  - HEPATORENAL FAILURE [None]
